FAERS Safety Report 15103062 (Version 3)
Quarter: 2018Q3

REPORT INFORMATION
  Report Type: Spontaneous
  Country: US (occurrence: US)
  Receive Date: 20180703
  Receipt Date: 20180830
  Transmission Date: 20181010
  Serious: Yes (Hospitalization, Other)
  Sender: FDA-Public Use
  Company Number: US-ELI_LILLY_AND_COMPANY-US201806011400

PATIENT
  Age: 39 Year
  Sex: Female
  Weight: 69.84 kg

DRUGS (4)
  1. CYMBALTA [Suspect]
     Active Substance: DULOXETINE HYDROCHLORIDE
     Indication: PAIN
     Dosage: UNK, UNKNOWN
     Route: 065
  2. DULOXETINE HYDROCHLORIDE. [Suspect]
     Active Substance: DULOXETINE HYDROCHLORIDE
     Indication: ANXIETY
     Dosage: UNK, UNKNOWN
     Route: 065
  3. CYMBALTA [Suspect]
     Active Substance: DULOXETINE HYDROCHLORIDE
     Dosage: UNK, UNKNOWN
     Route: 065
     Dates: end: 20171211
  4. CYMBALTA [Suspect]
     Active Substance: DULOXETINE HYDROCHLORIDE
     Indication: ANXIETY
     Dosage: UNK, UNKNOWN
     Route: 065
     Dates: start: 20170807

REACTIONS (22)
  - Weight decreased [Unknown]
  - Drug dependence [Unknown]
  - Back pain [Unknown]
  - Feeling abnormal [Unknown]
  - Paraesthesia [Unknown]
  - Hypertension [Unknown]
  - Decreased appetite [Unknown]
  - Anxiety [Unknown]
  - Sleep disorder [Unknown]
  - Vitamin D abnormal [Unknown]
  - Alcoholism [Unknown]
  - Ageusia [Unknown]
  - Thinking abnormal [Unknown]
  - Hot flush [Unknown]
  - Irritability [Unknown]
  - Dizziness [Unknown]
  - Muscle spasms [Unknown]
  - Withdrawal syndrome [Unknown]
  - Pain [Unknown]
  - Suicidal ideation [Recovering/Resolving]
  - Emotional disorder [Unknown]
  - Nausea [Unknown]
